FAERS Safety Report 7477611-2 (Version None)
Quarter: 2011Q2

REPORT INFORMATION
  Report Type: 
  Country: None (occurrence: None)
  Receive Date: 20110513
  Receipt Date: 20110503
  Transmission Date: 20111010
  Serious: No
  Sender: FDA-Public Use
  Company Number: US-JNJFOC-20110503801

PATIENT
  Sex: Female
  Weight: 181.44 kg

DRUGS (14)
  1. DEPO-PROVERA [Concomitant]
     Indication: HAEMORRHAGE
     Route: 030
  2. FENTANYL CITRATE [Suspect]
     Indication: ARTHRALGIA
     Route: 062
  3. NITRO TABS [Concomitant]
     Indication: CARDIAC DISORDER
     Route: 060
  4. LORTAB [Concomitant]
     Indication: BREAKTHROUGH PAIN
     Dosage: 7.5/500
     Route: 048
  5. SPIRONOLACTONE [Concomitant]
     Indication: CARDIAC DISORDER
     Route: 048
  6. DEPAKOTE [Concomitant]
     Indication: DRUG THERAPY
     Dosage: 500
     Route: 048
  7. LISINOPRIL [Concomitant]
     Indication: CARDIAC DISORDER
     Route: 048
  8. NOVOLOG [Concomitant]
     Indication: DIABETES MELLITUS
     Dosage: 30 UNITS
     Route: 058
  9. ZOLOFT [Concomitant]
     Indication: DEPRESSION
     Route: 048
  10. ADVAIR DISKUS 100/50 [Concomitant]
     Indication: ASTHMA
     Dosage: ONE PUFF
     Route: 055
  11. PROVENTIL GENTLEHALER [Concomitant]
     Indication: ASTHMA
     Dosage: ONE PUFF
     Route: 055
  12. LASIX [Concomitant]
     Indication: DIURETIC THERAPY
     Route: 048
  13. FENTANYL-100 [Suspect]
     Indication: ARTHRALGIA
     Route: 062
  14. NOVOLOG [Concomitant]
     Dosage: 20 UNITS
     Route: 058

REACTIONS (2)
  - PRODUCT QUALITY ISSUE [None]
  - WRONG TECHNIQUE IN DRUG USAGE PROCESS [None]
